FAERS Safety Report 8955613 (Version 1)
Quarter: 2012Q4

REPORT INFORMATION
  Report Type: 
  Country: US (occurrence: US)
  Receive Date: 20121207
  Receipt Date: 20121207
  Transmission Date: 20130627
  Serious: Yes (Hospitalization)
  Sender: FDA-Public Use
  Company Number: US-ROCHE-1161721

PATIENT
  Sex: Male

DRUGS (4)
  1. CELLCEPT [Suspect]
     Indication: MYASTHENIA GRAVIS
     Route: 065
  2. MYCOPHENOLATE MOFETIL [Suspect]
     Indication: MYASTHENIA GRAVIS
     Route: 065
  3. STATIN (UNK INGREDIENTS) [Concomitant]
  4. MUSCLE RELAXANT (UNK INGREDIENTS) [Concomitant]

REACTIONS (7)
  - Exostosis [Recovered/Resolved]
  - Myasthenia gravis [Not Recovered/Not Resolved]
  - Dysphagia [Not Recovered/Not Resolved]
  - Procedural pain [Unknown]
  - Hallucination [Unknown]
  - Mental impairment [Unknown]
  - Wrong technique in drug usage process [Unknown]
